FAERS Safety Report 18704166 (Version 1)
Quarter: 2021Q1

REPORT INFORMATION
  Report Type: Spontaneous
  Country: US (occurrence: US)
  Receive Date: 20210106
  Receipt Date: 20210106
  Transmission Date: 20210419
  Serious: Yes (Hospitalization, Other)
  Sender: FDA-Public Use
  Company Number: US-AUROBINDO-AUR-APL-2020-064440

PATIENT
  Age: 52 Year
  Sex: Female

DRUGS (1)
  1. CEFADROXIL. [Suspect]
     Active Substance: CEFADROXIL
     Indication: POSTOPERATIVE WOUND INFECTION
     Dosage: UNK
     Route: 065

REACTIONS (7)
  - Erythema multiforme [Unknown]
  - Rash maculo-papular [Unknown]
  - Jaundice [Unknown]
  - Drug reaction with eosinophilia and systemic symptoms [Unknown]
  - Hepatotoxicity [Unknown]
  - Acute hepatic failure [Recovered/Resolved]
  - Pyrexia [Unknown]
